FAERS Safety Report 9139370 (Version 1)
Quarter: 2013Q1

REPORT INFORMATION
  Report Type: Spontaneous
  Country: US (occurrence: US)
  Receive Date: 20130305
  Receipt Date: 20130305
  Transmission Date: 20140127
  Serious: Yes (Death, Other)
  Sender: FDA-Public Use
  Company Number: PHHY2013US021164

PATIENT
  Age: 43 Year
  Sex: Male

DRUGS (1)
  1. TOBRAMYCIN [Suspect]
     Indication: PSEUDOMONAS INFECTION
     Dosage: UNK

REACTIONS (3)
  - Death [Fatal]
  - Drug resistance [Unknown]
  - Pseudomonas infection [Unknown]
